FAERS Safety Report 15959637 (Version 1)
Quarter: 2019Q1

REPORT INFORMATION
  Report Type: Spontaneous
  Country: AT (occurrence: AT)
  Receive Date: 20190214
  Receipt Date: 20190214
  Transmission Date: 20190417
  Serious: Yes (Death)
  Sender: FDA-Public Use
  Company Number: AT-SA-2019SA040346

PATIENT
  Age: 37 Year
  Sex: Female

DRUGS (1)
  1. ARAVA [Suspect]
     Active Substance: LEFLUNOMIDE
     Indication: POLYARTHRITIS
     Dosage: UNK

REACTIONS (3)
  - Hospitalisation [Fatal]
  - Meningitis pneumococcal [Fatal]
  - Brain oedema [Fatal]

NARRATIVE: CASE EVENT DATE: 20181228
